FAERS Safety Report 23828709 (Version 3)
Quarter: 2024Q2

REPORT INFORMATION
  Report Type: Report from Study
  Country: JP (occurrence: JP)
  Receive Date: 20240508
  Receipt Date: 20240611
  Transmission Date: 20240716
  Serious: Yes (Death, Other)
  Sender: FDA-Public Use
  Company Number: JP-TAKEDA-2024TJP006441

PATIENT
  Age: 69 Year
  Sex: Female
  Weight: 44 kg

DRUGS (11)
  1. VONICOG ALFA [Suspect]
     Active Substance: VONICOG ALFA
     Indication: Haemostasis
     Dosage: 2600 INTERNATIONAL UNIT
     Route: 065
     Dates: start: 20230310
  2. VONICOG ALFA [Suspect]
     Active Substance: VONICOG ALFA
     Indication: Haemostasis
     Dosage: 2600 INTERNATIONAL UNIT
     Route: 065
     Dates: start: 20230620
  3. VONICOG ALFA [Suspect]
     Active Substance: VONICOG ALFA
     Dosage: 2600 INTERNATIONAL UNIT
     Route: 065
     Dates: start: 20230621
  4. VONICOG ALFA [Suspect]
     Active Substance: VONICOG ALFA
     Dosage: 2600 INTERNATIONAL UNIT
     Route: 065
     Dates: start: 20230622
  5. VONICOG ALFA [Suspect]
     Active Substance: VONICOG ALFA
     Dosage: UNK INTERNATIONAL UNIT
     Route: 065
     Dates: end: 20240211
  6. RINDERON [Concomitant]
     Indication: Swollen tongue
     Dosage: UNK
     Route: 065
  7. FUROSEMIDE [Concomitant]
     Active Substance: FUROSEMIDE
     Indication: Chronic kidney disease
     Dosage: UNK
     Route: 065
  8. DARBEPOETIN ALFA BIOSIMILAR 1 [Concomitant]
     Indication: Product used for unknown indication
     Dosage: UNK
     Route: 065
  9. GASTER [Concomitant]
     Active Substance: FAMOTIDINE
     Indication: Product used for unknown indication
     Dosage: UNK
     Route: 065
  10. ADYNOVATE [Concomitant]
     Active Substance: ANTIHEMOPHILIC FACTOR, HUMAN RECOMBINANT
     Dosage: 2000 INTERNATIONAL UNIT
     Route: 065
     Dates: start: 20230621
  11. ADYNOVATE [Concomitant]
     Active Substance: ANTIHEMOPHILIC FACTOR, HUMAN RECOMBINANT
     Dosage: 2000 INTERNATIONAL UNIT
     Route: 065
     Dates: start: 20230622

REACTIONS (2)
  - Plasma cell myeloma [Fatal]
  - Post procedural infection [Recovered/Resolved with Sequelae]

NARRATIVE: CASE EVENT DATE: 20230621
